FAERS Safety Report 15474658 (Version 8)
Quarter: 2019Q3

REPORT INFORMATION
  Report Type: Report from Study
  Country: BE (occurrence: BE)
  Receive Date: 20181008
  Receipt Date: 20190902
  Transmission Date: 20191004
  Serious: Yes (Other)
  Sender: FDA-Public Use
  Company Number: BE-PFIZER INC-2018021119

PATIENT
  Sex: Female
  Weight: 64 kg

DRUGS (19)
  1. BEVACIZUMAB. [Suspect]
     Active Substance: BEVACIZUMAB
     Dosage: 990 MG, CYCLIC (EVERY 3 WEEKS)
     Route: 042
     Dates: start: 20180911
  2. DUPHALAC [Concomitant]
     Active Substance: LACTULOSE
     Indication: PROPHYLAXIS
  3. OMEPRAZOLE. [Concomitant]
     Active Substance: OMEPRAZOLE
     Indication: PROPHYLAXIS
  4. LACTULOSE. [Concomitant]
     Active Substance: LACTULOSE
     Indication: PROPHYLAXIS
  5. CARBOPLATIN. [Suspect]
     Active Substance: CARBOPLATIN
     Indication: OVARIAN CANCER
     Dosage: 2AUC, CYCLIC 3 WEEKS ON, ONE WEEK REST
     Route: 042
     Dates: start: 20170913, end: 20171219
  6. AERIUS (DESLORATADINE) [Concomitant]
     Active Substance: DESLORATADINE
     Indication: PROPHYLAXIS
  7. COVERAM [Concomitant]
     Active Substance: AMLODIPINE\PERINDOPRIL
     Dosage: UNK
     Route: 065
     Dates: start: 201711
  8. SEROXAT [Concomitant]
     Active Substance: PAROXETINE HYDROCHLORIDE
     Indication: PROPHYLAXIS
  9. ASPIRIN CARDIO [Concomitant]
     Active Substance: ASPIRIN
  10. OXYBUTYNINE [OXYBUTYNIN HYDROCHLORIDE] [Concomitant]
  11. PACLITAXEL. [Suspect]
     Active Substance: PACLITAXEL
     Dosage: 48 MG/M2, CYCLIC (3 WEEKS ON, ONE WEEK OFF)
     Route: 042
     Dates: end: 20171219
  12. BEFACT FORTE [Concomitant]
     Indication: PROPHYLAXIS
  13. BEVACIZUMAB. [Suspect]
     Active Substance: BEVACIZUMAB
     Indication: OVARIAN CANCER
     Dosage: 660 MG, CYCLIC (EVERY 2 WEEKS)
     Route: 042
     Dates: start: 20170926
  14. BEVACIZUMAB. [Suspect]
     Active Substance: BEVACIZUMAB
     Dosage: 1020 MG, CYCLIC (EVERY 3 WEEKS)
     Route: 042
     Dates: start: 20181002
  15. HYDREA [Concomitant]
     Active Substance: HYDROXYUREA
  16. PACLITAXEL. [Suspect]
     Active Substance: PACLITAXEL
     Indication: OVARIAN CANCER
     Dosage: 80 MG/M2, CYCLIC (3 WEEKS ON, ONE WEEK REST)
     Route: 042
     Dates: start: 20170913
  17. XANAX [Concomitant]
     Active Substance: ALPRAZOLAM
     Indication: PROPHYLAXIS
  18. AMLODIPINE [Concomitant]
     Active Substance: AMLODIPINE BESYLATE
     Dosage: UNK
     Route: 065
     Dates: start: 2012
  19. ALDACTONE [Concomitant]
     Active Substance: SPIRONOLACTONE
     Dosage: UNK
     Route: 065
     Dates: start: 2018, end: 20180821

REACTIONS (14)
  - Oedema peripheral [Not Recovered/Not Resolved]
  - Back pain [Not Recovered/Not Resolved]
  - Epistaxis [Recovered/Resolved]
  - Constipation [Not Recovered/Not Resolved]
  - Hypertension [Recovered/Resolved]
  - Pain in extremity [Not Recovered/Not Resolved]
  - Hyperkalaemia [Recovered/Resolved]
  - Mucosal inflammation [Recovered/Resolved]
  - Proteinuria [Not Recovered/Not Resolved]
  - Fatigue [Not Recovered/Not Resolved]
  - Polyneuropathy [Not Recovered/Not Resolved]
  - Proteinuria [Not Recovered/Not Resolved]
  - Bursitis [Recovered/Resolved]
  - Pruritus [Recovered/Resolved]

NARRATIVE: CASE EVENT DATE: 20170926
